FAERS Safety Report 5913983-5 (Version None)
Quarter: 2008Q4

REPORT INFORMATION
  Report Type: 
  Country: None (occurrence: None)
  Receive Date: 20081007
  Receipt Date: 20080922
  Transmission Date: 20090506
  Serious: Yes (Hospitalization)
  Sender: FDA-Public Use
  Company Number: 2008002472

PATIENT
  Age: 72 Year
  Sex: Female

DRUGS (9)
  1. ERLOTINIB (ERLOTINIB) (TABLET) (ERLOTINIB) [Suspect]
     Indication: NON-SMALL CELL LUNG CANCER
     Dosage: (150 MG, QD), ORAL
     Route: 048
     Dates: start: 20080520, end: 20080911
  2. DOXYCYCLINE [Suspect]
     Indication: NON-SMALL CELL LUNG CANCER
     Dosage: ORAL
     Route: 048
     Dates: start: 20080519, end: 20080911
  3. ALPRAZOLAM [Concomitant]
  4. PRAVASTATIN [Concomitant]
  5. CALCIPRAT D3 [Concomitant]
  6. PAROXETINE HYDROCHLORIDE [Concomitant]
  7. TIMOPTIC [Concomitant]
  8. CARBOPLATIN [Concomitant]
  9. GEMCITABINE [Concomitant]

REACTIONS (1)
  - CONFUSIONAL STATE [None]
